FAERS Safety Report 25271607 (Version 1)
Quarter: 2025Q2

REPORT INFORMATION
  Report Type: Spontaneous
  Country: LT (occurrence: LT)
  Receive Date: 20250506
  Receipt Date: 20250506
  Transmission Date: 20250717
  Serious: Yes (Other)
  Sender: RANBAXY
  Company Number: LT-SUN PHARMACEUTICAL INDUSTRIES LTD-2025RR-506213

PATIENT
  Age: 77 Year
  Sex: Male

DRUGS (2)
  1. TEMOZOLOMIDE [Suspect]
     Active Substance: TEMOZOLOMIDE
     Indication: Glioblastoma
     Route: 065
  2. LOMUSTINE [Concomitant]
     Active Substance: LOMUSTINE
     Indication: Glioblastoma
     Route: 065

REACTIONS (4)
  - Disease progression [Unknown]
  - Fatigue [Unknown]
  - Visual impairment [Unknown]
  - Somnolence [Unknown]
